FAERS Safety Report 9553960 (Version 1)
Quarter: 2013Q3

REPORT INFORMATION
  Report Type: Spontaneous
  Country: FR (occurrence: FR)
  Receive Date: 20130925
  Receipt Date: 20130925
  Transmission Date: 20140515
  Serious: Yes (Hospitalization, Other)
  Sender: FDA-Public Use
  Company Number: FR-ROXANE LABORATORIES, INC.-2013-RO-01559RO

PATIENT
  Age: 64 Year
  Sex: Female

DRUGS (2)
  1. ROPINIROLE [Suspect]
     Indication: RESTLESS LEGS SYNDROME
     Dosage: 3 MG
  2. TRAMADOL [Suspect]
     Indication: RESTLESS LEGS SYNDROME
     Dosage: 100 MG

REACTIONS (5)
  - Major depression [Recovered/Resolved]
  - Drug withdrawal syndrome [Recovered/Resolved]
  - Condition aggravated [Unknown]
  - Compulsive shopping [Unknown]
  - Impulse-control disorder [Unknown]
